FAERS Safety Report 10984001 (Version 1)
Quarter: 2015Q2

REPORT INFORMATION
  Report Type: Spontaneous
  Country: US (occurrence: None)
  Receive Date: 20150401
  Receipt Date: 20150401
  Transmission Date: 20150821
  Serious: Yes (Other)
  Sender: FDA-Public Use
  Company Number: FK201501521

PATIENT
  Age: 63 Year
  Sex: Male

DRUGS (7)
  1. BUPIVACAINE (MANUFACTURER UNKNOWN) (BUPIVACAINE) (BUPIVACAINE) [Suspect]
     Active Substance: BUPIVACAINE
     Indication: ANALGESIC THERAPY
     Dosage: OTHER
  2. EPHEDRINE (EPHEDRINE) [Concomitant]
  3. NARCAN (NALOXONE HYDROCHLORIDE) [Concomitant]
  4. NORMAL SALINE (SODIUM CHLORIDE) [Concomitant]
  5. DILAUDID (HYDROMOPRHONE HYDROCHLORIDE) [Concomitant]
  6. DURAMOPH (MORPHINE SULFATE) [Concomitant]
  7. PHENYLEPHRINE (PHENYLEPHRINE) [Concomitant]

REACTIONS (7)
  - Intentional product use issue [None]
  - Hypotension [None]
  - Device deployment issue [None]
  - Hypoaesthesia [None]
  - Unresponsive to stimuli [None]
  - Bradypnoea [None]
  - Hemiparesis [None]
